FAERS Safety Report 4704114-8 (Version None)
Quarter: 2005Q2

REPORT INFORMATION
  Report Type: 
  Country: None (occurrence: None)
  Receive Date: 20050630
  Receipt Date: 20050621
  Transmission Date: 20051028
  Serious: Yes (Life-Threatening, Hospitalization)
  Sender: FDA-Public Use
  Company Number: US-AMGEN-US129196

PATIENT
  Sex: Male
  Weight: 81.7 kg

DRUGS (21)
  1. KEPIVANCE [Suspect]
     Indication: STOMATITIS
     Route: 042
     Dates: start: 20050330, end: 20050409
  2. ACYCLOVIR [Suspect]
     Route: 048
     Dates: start: 20050408, end: 20050429
  3. PROTONIX [Concomitant]
     Route: 048
     Dates: start: 20050405
  4. MELPHALAN [Concomitant]
     Route: 042
     Dates: start: 20050404, end: 20050405
  5. ATIVAN [Concomitant]
     Route: 048
     Dates: start: 20050405, end: 20050413
  6. NORVASC [Concomitant]
     Route: 048
     Dates: start: 20040901
  7. METOPROLOL [Concomitant]
     Route: 048
     Dates: start: 20040901
  8. PHOSLO [Concomitant]
     Route: 048
     Dates: start: 20040901
  9. DECADRON [Concomitant]
     Route: 048
     Dates: start: 20050405, end: 20050413
  10. DIFLUCAN [Concomitant]
     Route: 048
     Dates: start: 20050408, end: 20050417
  11. LEVAQUIN [Concomitant]
     Route: 048
     Dates: start: 20050408, end: 20050417
  12. COMPAZINE [Concomitant]
     Route: 048
     Dates: start: 20050408, end: 20050417
  13. KYTRIL [Concomitant]
     Route: 048
     Dates: start: 20050408, end: 20050417
  14. NEUPOGEN [Concomitant]
     Route: 058
     Dates: start: 20050408, end: 20050417
  15. EPOGEN [Concomitant]
     Route: 058
     Dates: start: 20050408, end: 20050417
  16. ASPIRIN ENTERIC COATED K.P. [Concomitant]
     Route: 048
  17. LIPITOR [Concomitant]
     Route: 048
  18. LISINOPRIL [Concomitant]
     Route: 048
  19. DOXAZOSIN MESYLATE [Concomitant]
     Route: 048
  20. RANITIDINE HYDROCHLORIDE [Concomitant]
     Route: 048
  21. NEPHRO-CAPS [Concomitant]
     Route: 048

REACTIONS (12)
  - ALOPECIA [None]
  - DIARRHOEA [None]
  - FEBRILE NEUTROPENIA [None]
  - NAUSEA [None]
  - OTITIS EXTERNA [None]
  - PARAESTHESIA [None]
  - PRURITUS [None]
  - RASH [None]
  - SEPSIS [None]
  - SKIN DISCOLOURATION [None]
  - SUBARACHNOID HAEMORRHAGE [None]
  - VOMITING [None]
